FAERS Safety Report 8095999-9 (Version None)
Quarter: 2012Q1

REPORT INFORMATION
  Report Type: 
  Country: None (occurrence: None)
  Receive Date: 20120129
  Receipt Date: 20111222
  Transmission Date: 20120608
  Serious: No
  Sender: FDA-Public Use
  Company Number: US-ABBOTT-11P-163-0886959-00

PATIENT
  Sex: Male

DRUGS (4)
  1. ORACEA [Concomitant]
     Indication: PSORIASIS
  2. ELIDEL [Concomitant]
     Indication: PSORIASIS
  3. HUMIRA [Suspect]
     Indication: PSORIATIC ARTHROPATHY
     Dates: start: 20110930
  4. NORVASC [Concomitant]
     Indication: HYPERTENSION

REACTIONS (1)
  - NASOPHARYNGITIS [None]
